FAERS Safety Report 10523856 (Version 3)
Quarter: 2014Q4

REPORT INFORMATION
  Report Type: Spontaneous
  Country: GB (occurrence: GB)
  Receive Date: 20141017
  Receipt Date: 20141120
  Transmission Date: 20150528
  Serious: Yes (Death, Other)
  Sender: FDA-Public Use
  Company Number: GB-009507513-1410GBR004890

PATIENT
  Age: 39 Year
  Sex: Male
  Weight: 90 kg

DRUGS (17)
  1. ZAPONEX [Suspect]
     Active Substance: CLOZAPINE
     Dosage: 150MG MANE, 400MG NOCTE
     Route: 048
     Dates: start: 20131206, end: 20140919
  2. CINNARIZINE [Concomitant]
     Active Substance: CINNARIZINE
  3. CHLORPROMAZINE [Concomitant]
     Active Substance: CHLORPROMAZINE
     Dosage: 50 MG, MAX 200 MG PER DAY; AS NEEDED
  4. LACTULOSE. [Concomitant]
     Active Substance: LACTULOSE
     Dosage: 10 ML, QD
     Route: 048
  5. RIBAVIRIN. [Suspect]
     Active Substance: RIBAVIRIN
     Indication: HEPATITIS C
     Dosage: 600 MICROGRAM, BID
     Route: 048
  6. DIACETYLMORPHINE [Suspect]
     Active Substance: DIACETYLMORPHINE
  7. LORAZEPAM. [Concomitant]
     Active Substance: LORAZEPAM
     Dosage: UNK
     Route: 048
  8. SCOPOLAMINE HYDROBROMIDE. [Concomitant]
     Active Substance: SCOPOLAMINE HYDROBROMIDE
     Dosage: 300 MICROGRAM, BID
  9. TRIHEXYPHENIDYL HYDROCHLORIDE. [Concomitant]
     Active Substance: TRIHEXYPHENIDYL HYDROCHLORIDE
     Indication: SALIVARY HYPERSECRETION
  10. LACTULOSE. [Concomitant]
     Active Substance: LACTULOSE
     Route: 048
  11. SENNA [Concomitant]
     Active Substance: SENNA LEAF\SENNOSIDES\SENNOSIDES A AND B
     Route: 048
  12. VIRAFERON [Suspect]
     Active Substance: INTERFERON ALFA-2B
     Indication: HEPATITIS C
     Dosage: 150 MICROGRAM, QW
     Route: 058
  13. DIAZEPAM. [Suspect]
     Active Substance: DIAZEPAM
  14. CINNARIZINE [Concomitant]
     Active Substance: CINNARIZINE
  15. CHLORPROMAZINE [Concomitant]
     Active Substance: CHLORPROMAZINE
     Dosage: 50 MG, MAX 200 MG PER DAY; AS NEEDED
  16. LORAZEPAM. [Concomitant]
     Active Substance: LORAZEPAM
     Dosage: AS NEEDED WITHIN MAX BNF DOSE
     Route: 048
  17. SENNA [Concomitant]
     Active Substance: SENNA LEAF\SENNOSIDES\SENNOSIDES A AND B
     Dosage: 2 TABS ONCE DAILY
     Route: 048

REACTIONS (20)
  - Visceral congestion [Fatal]
  - Somnolence [Fatal]
  - Glomerulosclerosis [Not Recovered/Not Resolved]
  - Neutropenia [Not Recovered/Not Resolved]
  - International normalised ratio decreased [Fatal]
  - Hepatic steatosis [Fatal]
  - White blood cell count decreased [Fatal]
  - Toxicity to various agents [Fatal]
  - Hepatitis C [Not Recovered/Not Resolved]
  - Activated partial thromboplastin time prolonged [Fatal]
  - Product use issue [Not Recovered/Not Resolved]
  - Alanine aminotransferase increased [Fatal]
  - Monocyte count increased [Fatal]
  - Pneumoconiosis [Not Recovered/Not Resolved]
  - Antipsychotic drug level increased [Not Recovered/Not Resolved]
  - Leukopenia [Not Recovered/Not Resolved]
  - Portal tract inflammation [Fatal]
  - Inflammation [Fatal]
  - Dysarthria [Fatal]
  - Neutrophil count decreased [Fatal]

NARRATIVE: CASE EVENT DATE: 20140527
